FAERS Safety Report 5992898-0 (Version None)
Quarter: 2008Q4

REPORT INFORMATION
  Report Type: 
  Country: None (occurrence: None)
  Receive Date: 20081212
  Receipt Date: 20081205
  Transmission Date: 20090506
  Serious: Yes (Other)
  Sender: FDA-Public Use
  Company Number: US-JNJFOC-20081202363

PATIENT
  Sex: Female
  Weight: 71.67 kg

DRUGS (14)
  1. DURAGESIC-100 [Suspect]
     Indication: BONE PAIN
     Route: 062
  2. POTASSIUM CHLORIDE [Concomitant]
     Indication: BLOOD PRESSURE
     Route: 048
  3. PRILOSEC [Concomitant]
     Indication: ULCER
     Route: 048
  4. CARISOPRODOL [Concomitant]
     Indication: OSTEITIS DEFORMANS
     Route: 048
  5. CARISOPRODOL [Concomitant]
     Indication: ARTHRITIS
     Route: 048
  6. LASIX [Concomitant]
     Indication: BLOOD PRESSURE
     Route: 048
  7. CATAPRES-TTS-1 [Concomitant]
     Indication: BLOOD PRESSURE
     Route: 062
  8. XANAX [Concomitant]
     Indication: SLEEP DISORDER
     Dosage: EVERY EVENING
     Route: 048
  9. NORVASE [Concomitant]
     Indication: BLOOD PRESSURE
     Route: 048
  10. INSPRA [Concomitant]
     Indication: BLOOD PRESSURE
     Route: 048
  11. LOPRESSOR [Concomitant]
     Indication: BLOOD PRESSURE
     Route: 048
  12. PRAVACHOL [Concomitant]
     Indication: BLOOD CHOLESTEROL
     Route: 048
  13. VITAMIN D [Concomitant]
     Indication: OSTEITIS DEFORMANS
     Dosage: ONE EVERY OTHER MONTH
     Route: 048
  14. EXCEDRIN [Concomitant]
     Indication: HEADACHE
     Dosage: EVERY MORNING
     Route: 048

REACTIONS (8)
  - BLADDER DISCOMFORT [None]
  - BLADDER PAIN [None]
  - DRUG WITHDRAWAL MAINTENANCE THERAPY [None]
  - INCORRECT DRUG ADMINISTRATION DURATION [None]
  - IRRITABILITY [None]
  - NERVOUSNESS [None]
  - SENSORY DISTURBANCE [None]
  - URINARY RETENTION [None]
